FAERS Safety Report 6310750-8 (Version None)
Quarter: 2009Q3

REPORT INFORMATION
  Report Type: 
  Country: None (occurrence: None)
  Receive Date: 20090812
  Receipt Date: 20090508
  Transmission Date: 20100115
  Serious: Yes (Hospitalization)
  Sender: FDA-Public Use
  Company Number: 632204

PATIENT
  Age: 63 Year
  Sex: Female

DRUGS (17)
  1. CELLCEPT [Suspect]
     Indication: PULMONARY FIBROSIS
     Dosage: 1000 MG
     Dates: start: 20050101
  2. ACTONEL [Concomitant]
  3. VITAMINE C (ASCORBIC ACID) [Concomitant]
  4. ZINC (ZINC NOS) [Concomitant]
  5. VENTOLIN [Concomitant]
  6. ARMOUR THYROID (LEVOTHYROXINE/LIOTHYRONINE) [Concomitant]
  7. PREDNISONE [Concomitant]
  8. THEOPHYLLINE [Concomitant]
  9. PREVACID [Concomitant]
  10. COZAAR [Concomitant]
  11. DIGOXIN [Concomitant]
  12. NORVASC [Concomitant]
  13. VERAPAMIL [Concomitant]
  14. CLONIDINE [Concomitant]
  15. IMMUNOGLOBULIN G (NORMAL IMMUNOGLOBULIN) [Concomitant]
  16. VALIUM [Concomitant]
  17. COUMADIN [Concomitant]

REACTIONS (2)
  - INSOMNIA [None]
  - PLATELET COUNT DECREASED [None]
